FAERS Safety Report 14624753 (Version 2)
Quarter: 2018Q2

REPORT INFORMATION
  Report Type: Spontaneous
  Country: US (occurrence: US)
  Receive Date: 20180312
  Receipt Date: 20180508
  Transmission Date: 20180711
  Serious: No
  Sender: FDA-Public Use
  Company Number: US-PFIZER INC-2018100389

PATIENT
  Age: 59 Year
  Sex: Female
  Weight: 68.27 kg

DRUGS (2)
  1. XANAX XR [Suspect]
     Active Substance: ALPRAZOLAM
     Indication: POST-TRAUMATIC STRESS DISORDER
     Dosage: 12 MG, DAILY (2MG ONE TABLET BY MOUTH SIX TIMES DAILY)
     Route: 048
     Dates: start: 2012
  2. XANAX XR [Suspect]
     Active Substance: ALPRAZOLAM
     Indication: FLASHBACK

REACTIONS (5)
  - Product use issue [Unknown]
  - Visual impairment [Unknown]
  - Panic reaction [Unknown]
  - Overdose [Unknown]
  - Condition aggravated [Unknown]

NARRATIVE: CASE EVENT DATE: 2012
